FAERS Safety Report 8948303 (Version 1)
Quarter: 2012Q4

REPORT INFORMATION
  Report Type: 
  Country: MX (occurrence: MX)
  Receive Date: 20121206
  Receipt Date: 20121206
  Transmission Date: 20130627
  Serious: Yes (Other)
  Sender: FDA-Public Use
  Company Number: PHHY2012MX111424

PATIENT
  Age: 75 Year
  Sex: Male

DRUGS (1)
  1. CO-DIOVAN [Suspect]
     Indication: HYPERTENSION
     Dosage: 1 DF,1 tablet (valsartan 80mg and hydrochlorothiazide 12.5mg) daily
     Route: 048
     Dates: start: 20111028

REACTIONS (4)
  - Convulsion [Recovered/Resolved]
  - Renal disorder [Recovered/Resolved]
  - Renal failure [Recovered/Resolved]
  - Fluid retention [Recovered/Resolved]
